FAERS Safety Report 5148842-1 (Version None)
Quarter: 2006Q4

REPORT INFORMATION
  Report Type: 
  Country: None (occurrence: None)
  Receive Date: 20061113
  Receipt Date: 20061102
  Transmission Date: 20070319
  Serious: Yes (Other)
  Sender: FDA-Public Use
  Company Number: JP-BRISTOL-MYERS SQUIBB COMPANY-13572474

PATIENT
  Age: 36 Year
  Sex: Female

DRUGS (7)
  1. ABILIFY [Suspect]
     Indication: SCHIZOPHRENIA
     Dosage: 11-OCT-2006 DOSE INCREASED TO 12MG/DAY
     Route: 048
     Dates: start: 20061005, end: 20061026
  2. RISPERIDONE [Concomitant]
     Route: 048
     Dates: start: 20060921, end: 20061026
  3. LEVOMEPROMAZINE MALEATE [Concomitant]
     Route: 048
     Dates: start: 20060921
  4. FLUNITRAZEPAM [Concomitant]
     Route: 048
     Dates: start: 20060921
  5. BIPERIDEN HYDROCHLORIDE TAB [Concomitant]
     Route: 048
     Dates: start: 20060921
  6. ETIZOLAM [Concomitant]
     Route: 048
     Dates: start: 20060921
  7. VALPROATE SODIUM [Concomitant]
     Route: 048

REACTIONS (1)
  - GRAND MAL CONVULSION [None]
